FAERS Safety Report 9418246 (Version 7)
Quarter: 2013Q4

REPORT INFORMATION
  Report Type: Report from Study
  Country: CA (occurrence: CA)
  Receive Date: 20130724
  Receipt Date: 20131112
  Transmission Date: 20140711
  Serious: Yes (Hospitalization)
  Sender: FDA-Public Use
  Company Number: CA-PFIZER INC-2013211883

PATIENT
  Age: 61 Year
  Sex: Female
  Weight: 87.7 kg

DRUGS (3)
  1. TOFACITINIB CITRATE [Suspect]
     Indication: RHEUMATOID ARTHRITIS
     Dosage: 10 MG, 2X/DAY
     Route: 048
     Dates: start: 20100106, end: 20130712
  2. METHOTREXATE [Concomitant]
     Indication: RHEUMATOID ARTHRITIS
     Dosage: 10 MG, WEEKLY (ONCE A WEEK)
     Route: 048
     Dates: start: 20090818, end: 20130710
  3. APO-FOLIC [Concomitant]
     Indication: RHEUMATOID ARTHRITIS
     Dosage: 5 MG, WEEKLY (ONCE A WEEK)
     Route: 048
     Dates: start: 2007, end: 20130711

REACTIONS (1)
  - Gastroenteritis [Recovered/Resolved]
